FAERS Safety Report 4367075-X (Version None)
Quarter: 2004Q2

REPORT INFORMATION
  Report Type: 
  Country: None (occurrence: None)
  Receive Date: 20040528
  Receipt Date: 20040513
  Transmission Date: 20050107
  Serious: Yes (Other)
  Sender: FDA-Public Use
  Company Number: AU-MERCK-0405AUS00108

PATIENT
  Sex: Female

DRUGS (2)
  1. PRINIVIL [Suspect]
     Route: 048
  2. PRAVASTATIN SODIUM [Suspect]
     Route: 065
     Dates: end: 20040101

REACTIONS (2)
  - DEMENTIA ALZHEIMER'S TYPE [None]
  - TREMOR [None]
